FAERS Safety Report 24965975 (Version 1)
Quarter: 2025Q1

REPORT INFORMATION
  Report Type: Spontaneous
  Country: US (occurrence: US)
  Receive Date: 20250213
  Receipt Date: 20250213
  Transmission Date: 20250408
  Serious: Yes (Other)
  Sender: SANOFI AVENTIS
  Company Number: US-SA-2025SA043780

PATIENT
  Age: 7 Year
  Sex: Female

DRUGS (1)
  1. DUPIXENT [Suspect]
     Active Substance: DUPILUMAB
     Indication: Dermatitis atopic
     Route: 058
     Dates: start: 20240301, end: 20241101

REACTIONS (9)
  - Chronic kidney disease [Unknown]
  - Molluscum contagiosum [Unknown]
  - Staphylococcal infection [Unknown]
  - Joint swelling [Unknown]
  - Swelling face [Unknown]
  - Peripheral swelling [Unknown]
  - Gait disturbance [Unknown]
  - Blood uric acid increased [Unknown]
  - Arthralgia [Unknown]

NARRATIVE: CASE EVENT DATE: 20240101
